FAERS Safety Report 24373232 (Version 1)
Quarter: 2024Q3

REPORT INFORMATION
  Report Type: Spontaneous
  Country: US (occurrence: US)
  Receive Date: 20240927
  Receipt Date: 20240927
  Transmission Date: 20241017
  Serious: No
  Sender: BIOMARIN
  Company Number: US-SA-2024SA277031

PATIENT

DRUGS (1)
  1. LARONIDASE [Suspect]
     Active Substance: LARONIDASE
     Indication: Mucopolysaccharidosis I
     Dosage: 63.8 (UNITS NOT PROVIDED), QW
     Route: 042

REACTIONS (2)
  - Joint range of motion decreased [Unknown]
  - Arthralgia [Unknown]
